FAERS Safety Report 15267248 (Version 1)
Quarter: 2018Q3

REPORT INFORMATION
  Report Type: Report from Study
  Country: DE (occurrence: DE)
  Receive Date: 20180810
  Receipt Date: 20180810
  Transmission Date: 20181010
  Serious: Yes (Hospitalization, Other)
  Sender: FDA-Public Use
  Company Number: DE-TEVA-2018-DE-938534

PATIENT
  Sex: Female

DRUGS (3)
  1. MTX [Suspect]
     Active Substance: METHOTREXATE SODIUM
     Indication: PRODUCT USED FOR UNKNOWN INDICATION
     Dosage: 5 MG, UNK
     Route: 065
  2. CERTOLIZUMAB PEGOL RA [Suspect]
     Active Substance: CERTOLIZUMAB PEGOL
     Route: 058
     Dates: start: 201604
  3. CERTOLIZUMAB PEGOL RA [Suspect]
     Active Substance: CERTOLIZUMAB PEGOL
     Route: 058
     Dates: start: 2016, end: 20161026

REACTIONS (13)
  - Enteritis [Recovered/Resolved]
  - Gastrointestinal disorder [Unknown]
  - Fibromyalgia [Unknown]
  - Bronchitis [Unknown]
  - Nausea [Unknown]
  - Helicobacter gastritis [Unknown]
  - Headache [Unknown]
  - Hernia [Unknown]
  - Neurodermatitis [Unknown]
  - Restless legs syndrome [Unknown]
  - Alopecia [Unknown]
  - Rosacea [Unknown]
  - Depression [Unknown]

NARRATIVE: CASE EVENT DATE: 20160715
